FAERS Safety Report 4944806-9 (Version None)
Quarter: 2006Q1

REPORT INFORMATION
  Report Type: 
  Country: None (occurrence: None)
  Receive Date: 20060103
  Receipt Date: 20051123
  Transmission Date: 20060701
  Serious: Yes (Hospitalization)
  Sender: FDA-Public Use
  Company Number: 143818USA

PATIENT
  Age: 80 Year
  Sex: Male

DRUGS (2)
  1. AMIODARONE HCL [Suspect]
     Indication: TACHYCARDIA
     Dates: start: 20051117, end: 20051117
  2. CARDIZEM [Concomitant]

REACTIONS (2)
  - BRADYCARDIA [None]
  - MEDICATION ERROR [None]
